FAERS Safety Report 13338445 (Version 1)
Quarter: 2017Q1

REPORT INFORMATION
  Report Type: Spontaneous
  Country: GB (occurrence: GB)
  Receive Date: 20170315
  Receipt Date: 20170315
  Transmission Date: 20170428
  Serious: Yes (Death, Hospitalization)
  Sender: FDA-Public Use
  Company Number: GB-TEVA-749154ACC

PATIENT
  Age: 64 Year
  Sex: Male
  Weight: 96 kg

DRUGS (1)
  1. WARFARIN SODIUM. [Suspect]
     Active Substance: WARFARIN SODIUM
     Indication: DEEP VEIN THROMBOSIS
     Dosage: UNKNOWN AT THIS HOSPITAL
     Route: 048
     Dates: end: 20170102

REACTIONS (3)
  - Cerebral haematoma [Not Recovered/Not Resolved]
  - Pneumonia [Fatal]
  - International normalised ratio increased [Unknown]

NARRATIVE: CASE EVENT DATE: 20170102
